FAERS Safety Report 10581446 (Version 1)
Quarter: 2014Q4

REPORT INFORMATION
  Report Type: Spontaneous
  Country: US (occurrence: None)
  Receive Date: 20141112
  Receipt Date: 20141112
  Transmission Date: 20150529
  Serious: Yes (Other)
  Sender: FDA-Public Use
  Company Number: None

PATIENT
  Age: 11 Year
  Sex: Female
  Weight: 54.43 kg

DRUGS (5)
  1. QUETIAPINE [Concomitant]
     Active Substance: QUETIAPINE
  2. LYSDEXAMPHETAMINE [Concomitant]
  3. LAMOTRIGINE. [Suspect]
     Active Substance: LAMOTRIGINE
     Indication: MENTAL DISORDER
     Dosage: 1 TABLET BID ORAL
     Route: 048
  4. QUANFACINE ER [Concomitant]
  5. LAMOTRIGINE. [Suspect]
     Active Substance: LAMOTRIGINE
     Indication: ABNORMAL BEHAVIOUR
     Dosage: 1 TABLET BID ORAL
     Route: 048

REACTIONS (8)
  - Dizziness [None]
  - Fatigue [None]
  - Therapy change [None]
  - Anger [None]
  - Back pain [None]
  - Pyrexia [None]
  - Agitation [None]
  - Self-injurious ideation [None]

NARRATIVE: CASE EVENT DATE: 20130125
